FAERS Safety Report 14466535 (Version 3)
Quarter: 2018Q2

REPORT INFORMATION
  Report Type: Spontaneous
  Country: DE (occurrence: DE)
  Receive Date: 20180131
  Receipt Date: 20180620
  Transmission Date: 20180711
  Serious: Yes (Hospitalization, Other)
  Sender: FDA-Public Use
  Company Number: DE-TORRENT-00006823

PATIENT
  Age: 20 Year
  Sex: Male

DRUGS (2)
  1. SERTRALINE [Suspect]
     Active Substance: SERTRALINE HYDROCHLORIDE
     Indication: MENTAL DISORDER
     Dosage: 100 MG, UNK
  2. ZIPRASIDONE. [Interacting]
     Active Substance: ZIPRASIDONE
     Indication: DEPRESSIVE SYMPTOM
     Dosage: 60 MG, QD, DAILY DOSE (TD) OF 60 MG AND INCREASING TO 80 MG TD

REACTIONS (11)
  - Nausea [Recovered/Resolved]
  - Serotonin syndrome [Recovered/Resolved]
  - Hyperhidrosis [Recovered/Resolved]
  - Ventricular tachycardia [Recovered/Resolved]
  - Disturbance in attention [Recovered/Resolved]
  - Muscle spasms [Recovered/Resolved]
  - Product use in unapproved indication [Unknown]
  - Agitation [Recovered/Resolved]
  - Drug interaction [Unknown]
  - Hallucination, auditory [Recovered/Resolved]
  - Depressive symptom [Unknown]
